FAERS Safety Report 12171021 (Version 2)
Quarter: 2016Q2

REPORT INFORMATION
  Report Type: Report from Study
  Country: AR (occurrence: AR)
  Receive Date: 20160311
  Receipt Date: 20160408
  Transmission Date: 20160815
  Serious: Yes (Hospitalization, Other)
  Sender: FDA-Public Use
  Company Number: PHHY2016AR032253

PATIENT
  Sex: Male

DRUGS (1)
  1. DIOVAN [Suspect]
     Active Substance: VALSARTAN
     Indication: BLOOD PRESSURE ABNORMAL
     Dosage: 1 DF, QD (AFTER BREAKFAST)
     Route: 065

REACTIONS (7)
  - Anaemia [Not Recovered/Not Resolved]
  - Secretion discharge [Recovering/Resolving]
  - Radiation skin injury [Recovering/Resolving]
  - Dysphagia [Recovering/Resolving]
  - Middle ear disorder [Recovering/Resolving]
  - Sarcoma [Recovered/Resolved]
  - Salivary gland disorder [Recovering/Resolving]
